FAERS Safety Report 7520086-5 (Version None)
Quarter: 2011Q2

REPORT INFORMATION
  Report Type: 
  Country: None (occurrence: None)
  Receive Date: 20110602
  Receipt Date: 20110531
  Transmission Date: 20111010
  Serious: Yes (Life-Threatening, Hospitalization)
  Sender: FDA-Public Use
  Company Number: US-B.I. PHARMACEUTICALS,INC./RIDGEFIELD-2011-BP-09954BP

PATIENT
  Sex: Male
  Weight: 70.31 kg

DRUGS (6)
  1. ASPIRIN [Concomitant]
     Dosage: 40.5 MG
  2. PRADAXA [Suspect]
     Indication: ATRIAL FIBRILLATION
     Dosage: 300 MG
     Route: 048
     Dates: start: 20101203, end: 20110403
  3. TORSEMIDE [Concomitant]
     Dosage: 40 MG
  4. SPIRONOLACTONE [Concomitant]
     Dosage: 12.5 MG
  5. GLIPIZIDE [Concomitant]
     Dosage: 5 MG
  6. COREG [Concomitant]
     Dosage: 6.25 MG

REACTIONS (2)
  - GASTROINTESTINAL HAEMORRHAGE [None]
  - ANAEMIA [None]
